FAERS Safety Report 24464610 (Version 1)
Quarter: 2024Q4

REPORT INFORMATION
  Report Type: Report from Study
  Country: US (occurrence: US)
  Receive Date: 20241018
  Receipt Date: 20241018
  Transmission Date: 20250114
  Serious: No
  Sender: ROCHE
  Company Number: US-ROCHE-3505259

PATIENT
  Age: 69 Year
  Sex: Female

DRUGS (7)
  1. XOLAIR [Suspect]
     Active Substance: OMALIZUMAB
     Indication: Idiopathic urticaria
     Route: 058
  2. XOLAIR [Suspect]
     Active Substance: OMALIZUMAB
  3. AMOXICILLIN [Concomitant]
     Active Substance: AMOXICILLIN
  4. CODEINE [Concomitant]
     Active Substance: CODEINE
  5. LIDOCAINE [Concomitant]
     Active Substance: LIDOCAINE
  6. NAPROXEN [Concomitant]
     Active Substance: NAPROXEN
  7. PENICILLIN [Concomitant]
     Active Substance: PENICILLIN

REACTIONS (2)
  - Off label use [Unknown]
  - No adverse event [Unknown]
